FAERS Safety Report 7250211-5 (Version None)
Quarter: 2011Q1

REPORT INFORMATION
  Report Type: 
  Country: None (occurrence: None)
  Receive Date: 20110128
  Receipt Date: 20110110
  Transmission Date: 20110831
  Serious: Yes (Other)
  Sender: FDA-Public Use
  Company Number: US-BAYER-2010-005982

PATIENT
  Sex: Female

DRUGS (1)
  1. MIRENA [Suspect]
     Dosage: UNK
     Dates: start: 20060101, end: 20060801

REACTIONS (7)
  - POST PROCEDURAL HAEMORRHAGE [None]
  - ABORTION SPONTANEOUS [None]
  - DEVICE EXPULSION [None]
  - NAUSEA [None]
  - VOMITING [None]
  - DYSPEPSIA [None]
  - PREGNANCY [None]
